FAERS Safety Report 15712519 (Version 1)
Quarter: 2018Q4

REPORT INFORMATION
  Report Type: Spontaneous
  Country: US (occurrence: US)
  Receive Date: 20181212
  Receipt Date: 20181212
  Transmission Date: 20190205
  Serious: No
  Sender: FDA-Public Use
  Company Number: US-ZYDUS-026877

PATIENT
  Age: 5 Month
  Sex: Female

DRUGS (2)
  1. FLUCONAZOLE. [Suspect]
     Active Substance: FLUCONAZOLE
     Indication: CANDIDA INFECTION
     Dosage: 200 MG ON DAY 1, 100 MG ON DAY 2-14
     Route: 048
     Dates: start: 20180901, end: 20180902
  2. FLUCONAZOLE. [Suspect]
     Active Substance: FLUCONAZOLE
     Indication: CANDIDA INFECTION
     Dosage: 4ML ON DAY 1, 2ML ON DAY 2-4
     Route: 065
     Dates: start: 20180830, end: 20180902

REACTIONS (8)
  - Crying [Recovered/Resolved]
  - Sinusitis [Recovered/Resolved]
  - Eye swelling [Not Recovered/Not Resolved]
  - Abdominal pain upper [Recovered/Resolved]
  - Decreased appetite [Recovered/Resolved]
  - Insomnia [Recovered/Resolved]
  - Exposure via breast milk [Recovered/Resolved]
  - Ocular hyperaemia [Not Recovered/Not Resolved]

NARRATIVE: CASE EVENT DATE: 2018
